FAERS Safety Report 5208515-3 (Version None)
Quarter: 2006Q4

REPORT INFORMATION
  Report Type: 
  Country: None (occurrence: None)
  Receive Date: 20061027
  Receipt Date: 20060227
  Transmission Date: 20070319
  Serious: Yes (Other)
  Sender: FDA-Public Use
  Company Number: HQWYE581028JUL05

PATIENT
  Age: 63 Year
  Sex: Female
  Weight: 69.46 kg

DRUGS (2)
  1. PREMARIN [Suspect]
     Indication: HORMONE REPLACEMENT THERAPY
     Dosage: 0.625MG, FREQUENCY UNKNOWN, ORAL
     Route: 048
     Dates: start: 20000101, end: 20031201
  2. PREMARIN [Suspect]
     Indication: MENOPAUSAL SYMPTOMS
     Dosage: 0.625MG, FREQUENCY UNKNOWN, ORAL
     Route: 048
     Dates: start: 20000101, end: 20031201

REACTIONS (1)
  - BREAST CANCER [None]
